FAERS Safety Report 20310854 (Version 2)
Quarter: 2022Q1

REPORT INFORMATION
  Report Type: Spontaneous
  Country: FR (occurrence: FR)
  Receive Date: 20220107
  Receipt Date: 20220308
  Transmission Date: 20220424
  Serious: Yes (Hospitalization)
  Sender: FDA-Public Use
  Company Number: None

PATIENT
  Age: 60 Year
  Sex: Male
  Weight: 82 kg

DRUGS (3)
  1. VENETOCLAX [Suspect]
     Active Substance: VENETOCLAX
     Indication: Acute monocytic leukaemia
     Dosage: 100MG PAR JOUR
     Route: 048
     Dates: start: 20210726, end: 20211124
  2. REVLIMID [Suspect]
     Active Substance: LENALIDOMIDE
     Indication: Prophylaxis against transplant rejection
     Dosage: 5MG PAR JOUR
     Route: 048
     Dates: start: 20211029, end: 20211124
  3. LENALIDOMIDE [Concomitant]
     Active Substance: LENALIDOMIDE
     Indication: Prophylaxis against transplant rejection
     Route: 048
     Dates: start: 20211029, end: 20211124

REACTIONS (1)
  - Interstitial lung disease [Not Recovered/Not Resolved]

NARRATIVE: CASE EVENT DATE: 20211124
